FAERS Safety Report 25614990 (Version 2)
Quarter: 2025Q3

REPORT INFORMATION
  Report Type: Spontaneous
  Country: JP (occurrence: None)
  Receive Date: 20250729
  Receipt Date: 20250814
  Transmission Date: 20251021
  Serious: Yes (Hospitalization)
  Sender: ORION
  Company Number: JP-Orion Corporation ORION PHARMA-ENTC2025-0094

PATIENT
  Age: 71 Year
  Sex: Male

DRUGS (12)
  1. STALEVO [Suspect]
     Active Substance: CARBIDOPA\ENTACAPONE\LEVODOPA
     Indication: Parkinson^s disease
     Dosage: LEVODOPA 100-CARBIDOPA-ENTACAPONE (LEVODOPA: 600 MG)
  2. STALEVO [Suspect]
     Active Substance: CARBIDOPA\ENTACAPONE\LEVODOPA
     Dosage: LEVODOPA 100-CARBIDOPA-ENTACAPONE (LEVODOPA: 600 MG)
     Dates: start: 202507
  3. DROXIDOPA [Suspect]
     Active Substance: DROXIDOPA
     Indication: Parkinson^s disease
  4. NEUPRO [Suspect]
     Active Substance: ROTIGOTINE
     Indication: Parkinson^s disease
  5. MOSAPRIDE [Concomitant]
     Active Substance: MOSAPRIDE
  6. MAGMITT 330 [Concomitant]
  7. CLONAZEPAM [Concomitant]
     Active Substance: CLONAZEPAM
  8. DULOXETINE [Concomitant]
     Active Substance: DULOXETINE
     Dates: end: 20250801
  9. REQUIP [Concomitant]
     Active Substance: ROPINIROLE HYDROCHLORIDE
     Indication: Parkinson^s disease
     Dates: end: 20250801
  10. DONEPEZIL [Concomitant]
     Active Substance: DONEPEZIL
  11. ISTRADEFYLLINE [Concomitant]
     Active Substance: ISTRADEFYLLINE
  12. VIBEGRON [Concomitant]
     Active Substance: VIBEGRON

REACTIONS (3)
  - Pneumonia aspiration [Recovering/Resolving]
  - Product use issue [Unknown]
  - Wrong technique in product usage process [Unknown]

NARRATIVE: CASE EVENT DATE: 20250701
